FAERS Safety Report 20018611 (Version 1)
Quarter: 2021Q4

REPORT INFORMATION
  Report Type: Spontaneous
  Country: US (occurrence: US)
  Receive Date: 20211101
  Receipt Date: 20211101
  Transmission Date: 20220303
  Serious: No
  Sender: FDA-Public Use
  Company Number: US-TEVA-2021-US-1970424

PATIENT
  Age: 52 Year
  Sex: Male

DRUGS (2)
  1. COPAXONE [Suspect]
     Active Substance: GLATIRAMER ACETATE
     Route: 065
  2. KESIMPTA [Concomitant]
     Active Substance: OFATUMUMAB
     Dosage: AUTOINJECTOR

REACTIONS (3)
  - Drug ineffective [Unknown]
  - Pruritus [Unknown]
  - Swelling [Unknown]
